FAERS Safety Report 5746399-5 (Version None)
Quarter: 2008Q2

REPORT INFORMATION
  Report Type: 
  Country: None (occurrence: None)
  Receive Date: 20080520
  Receipt Date: 20080520
  Transmission Date: 20081010
  Serious: Yes (Other)
  Sender: FDA-Public Use
  Company Number: None

PATIENT
  Age: 39 Year
  Sex: Female
  Weight: 100.6985 kg

DRUGS (1)
  1. ESOMEPRAZOLE MAGNESIUM [Suspect]
     Indication: DYSPEPSIA
     Dosage: 40MG 2X DAY PO
     Route: 048
     Dates: start: 20080509, end: 20080519

REACTIONS (2)
  - MUSCLE SPASMS [None]
  - TREMOR [None]
